FAERS Safety Report 4531925-4 (Version None)
Quarter: 2004Q4

REPORT INFORMATION
  Report Type: 
  Country: None (occurrence: None)
  Receive Date: 20041220
  Receipt Date: 20041206
  Transmission Date: 20050328
  Serious: Yes (Hospitalization, Other)
  Sender: FDA-Public Use
  Company Number: US-GLAXOSMITHKLINE-A0536094A

PATIENT
  Age: 66 Year
  Sex: Female

DRUGS (4)
  1. NICODERM CQ [Suspect]
     Route: 062
     Dates: start: 19910101, end: 19910101
  2. PREMARIN [Concomitant]
     Route: 048
  3. PREMPRO [Concomitant]
     Route: 048
  4. ZOLOFT [Concomitant]
     Route: 048

REACTIONS (3)
  - BIOPSY LYMPH GLAND ABNORMAL [None]
  - BLADDER PROLAPSE [None]
  - BREAST CANCER [None]
